FAERS Safety Report 5128799-X (Version None)
Quarter: 2006Q4

REPORT INFORMATION
  Report Type: 
  Country: None (occurrence: None)
  Receive Date: 20061017
  Receipt Date: 20061006
  Transmission Date: 20070319
  Serious: Yes (Hospitalization)
  Sender: FDA-Public Use
  Company Number: MA-SANOFI-SYNTHELABO-A01200608407

PATIENT
  Sex: Male

DRUGS (1)
  1. XATRAL LP [Suspect]
     Indication: DRUG USE FOR UNKNOWN INDICATION
     Dosage: UNK
     Route: 048

REACTIONS (1)
  - HEPATITIS [None]
